FAERS Safety Report 6815197-3 (Version None)
Quarter: 2010Q2

REPORT INFORMATION
  Report Type: 
  Country: None (occurrence: None)
  Receive Date: 20100629
  Receipt Date: 20100615
  Transmission Date: 20101027
  Serious: Yes (Other)
  Sender: FDA-Public Use
  Company Number: 2010SCPR001425

PATIENT
  Age: 70 Year
  Sex: Male

DRUGS (8)
  1. METRONIDAZOLE [Suspect]
     Indication: CELLULITIS
     Dosage: 400 MG, TDS, ORAL
     Route: 048
  2. WARFARIN SODIUM [Suspect]
     Indication: PULMONARY EMBOLISM
  3. ASPIRIN [Suspect]
     Indication: DRUG USE FOR UNKNOWN INDICATION
     Dosage: 300 MG, QD, UNKNOWN, 75 MG, QD, UNKNOWN
  4. CLOPIDOGREL [Suspect]
     Indication: DRUG USE FOR UNKNOWN INDICATION
     Dosage: 300 MG, QD, UNKNOWN, 75 MG, QD, UNKNOWN
  5. ERYTHROMYCIN [Suspect]
     Indication: DRUG USE FOR UNKNOWN INDICATION
     Dosage: 250 MG, QID, ORAL
     Route: 048
  6. CIPROFLOXACIN [Suspect]
     Indication: CELLULITIS
     Dosage: 750 MG, BID, ORAL
     Route: 048
  7. MEROPENEM [Suspect]
     Indication: CELLULITIS
     Dosage: 2G, BID, INTRAVENOUS
     Route: 042
  8. TEICOPLANIN (TEICOPLANIN) INJECTION, 400MG [Suspect]
     Indication: CELLULITIS
     Dosage: 400 MG, OD, INTRAMUSCULAR
     Route: 030

REACTIONS (12)
  - CELLULITIS [None]
  - CHALAZION [None]
  - CHEST PAIN [None]
  - DECREASED APPETITE [None]
  - DIABETIC RETINOPATHY [None]
  - DRUG INTERACTION [None]
  - EYE EXCISION [None]
  - HEADACHE [None]
  - HYPHAEMA [None]
  - INTERNATIONAL NORMALISED RATIO INCREASED [None]
  - NAUSEA [None]
  - PYREXIA [None]
